FAERS Safety Report 6248269-5 (Version None)
Quarter: 2009Q2

REPORT INFORMATION
  Report Type: 
  Country: None (occurrence: None)
  Receive Date: 20090629
  Receipt Date: 20090616
  Transmission Date: 20091009
  Serious: Yes (Other)
  Sender: FDA-Public Use
  Company Number: PHEH2007US15307

PATIENT
  Sex: Female

DRUGS (1)
  1. TYZEKA [Suspect]

REACTIONS (2)
  - BRAIN OEDEMA [None]
  - DRUG EXPOSURE DURING PREGNANCY [None]
